FAERS Safety Report 20684955 (Version 1)
Quarter: 2022Q2

REPORT INFORMATION
  Report Type: Spontaneous
  Country: US (occurrence: US)
  Receive Date: 20220407
  Receipt Date: 20220407
  Transmission Date: 20220720
  Serious: No
  Sender: FDA-Public Use
  Company Number: US-TAKEDA-2022TUS023062

PATIENT
  Sex: Female

DRUGS (2)
  1. MOTEGRITY [Suspect]
     Active Substance: PRUCALOPRIDE SUCCINATE
     Indication: Constipation
     Dosage: 1 MILLIGRAM
     Route: 065
  2. MOTEGRITY [Suspect]
     Active Substance: PRUCALOPRIDE SUCCINATE
     Dosage: 2 MILLIGRAM
     Route: 065

REACTIONS (4)
  - Overdose [Unknown]
  - Adverse drug reaction [Unknown]
  - Headache [Unknown]
  - Drug ineffective [Unknown]
